FAERS Safety Report 19510310 (Version 1)
Quarter: 2021Q3

REPORT INFORMATION
  Report Type: Spontaneous
  Country: ES (occurrence: ES)
  Receive Date: 20210708
  Receipt Date: 20210708
  Transmission Date: 20211014
  Serious: Yes (Death, Life-Threatening, Hospitalization)
  Sender: FDA-Public Use
  Company Number: ES-JNJFOC-20210717124

PATIENT
  Age: 63 Year
  Sex: Female

DRUGS (10)
  1. CAELYX [Suspect]
     Active Substance: DOXORUBICIN HYDROCHLORIDE
     Indication: OVARIAN CANCER
     Route: 065
     Dates: start: 201507, end: 201512
  2. OLAPARIB. [Suspect]
     Active Substance: OLAPARIB
     Indication: OVARIAN CANCER
     Route: 065
  3. CARBOPLATIN. [Suspect]
     Active Substance: CARBOPLATIN
     Indication: OVARIAN CANCER
     Dosage: (AUC 5), 6 CYCLES
     Route: 065
     Dates: start: 201204, end: 201209
  4. CARBOPLATIN. [Suspect]
     Active Substance: CARBOPLATIN
     Dosage: (AUC 5), 3 CYCLES
     Route: 065
     Dates: start: 201310
  5. CARBOPLATIN. [Suspect]
     Active Substance: CARBOPLATIN
     Dosage: (AUC 2)
     Route: 065
     Dates: start: 201611, end: 201702
  6. GEMCITABINE. [Suspect]
     Active Substance: GEMCITABINE
     Indication: OVARIAN CANCER
     Dosage: (3 CYCLES)
     Route: 065
     Dates: start: 201310
  7. YONDELIS [Suspect]
     Active Substance: TRABECTEDIN
     Indication: OVARIAN CANCER
     Route: 065
     Dates: start: 201507, end: 201512
  8. PACLITAXEL. [Suspect]
     Active Substance: PACLITAXEL
     Indication: OVARIAN CANCER
     Dosage: 6 CYCLES
     Route: 065
     Dates: start: 201204, end: 201209
  9. CARBOPLATIN. [Suspect]
     Active Substance: CARBOPLATIN
     Dosage: (AUC 5), 3 CYCLES
     Route: 065
     Dates: start: 201406, end: 201409
  10. GEMCITABINE. [Suspect]
     Active Substance: GEMCITABINE
     Dosage: (3 CYCLES)
     Route: 065
     Dates: start: 201406, end: 201409

REACTIONS (2)
  - Gastrointestinal infection [Recovered/Resolved]
  - Acute myeloid leukaemia [Unknown]

NARRATIVE: CASE EVENT DATE: 201903
